FAERS Safety Report 4614422-7 (Version None)
Quarter: 2005Q1

REPORT INFORMATION
  Report Type: 
  Country: None (occurrence: None)
  Receive Date: 20050315
  Receipt Date: 20050228
  Transmission Date: 20050727
  Serious: Yes (Hospitalization)
  Sender: FDA-Public Use
  Company Number: 2005BI004466

PATIENT
  Age: 56 Year
  Sex: Female

DRUGS (2)
  1. AVONEX [Suspect]
     Indication: MULTIPLE SCLEROSIS
     Dosage: 30 UG; QW; IM
     Route: 030
     Dates: start: 19960101
  2. AVONEX [Suspect]
     Dosage: 30 UG; QW; IM
     Route: 030

REACTIONS (6)
  - EYE INJURY [None]
  - FACIAL BONES FRACTURE [None]
  - FALL [None]
  - HEAD INJURY [None]
  - SKIN LACERATION [None]
  - WOUND [None]
